FAERS Safety Report 24641875 (Version 1)
Quarter: 2024Q4

REPORT INFORMATION
  Report Type: Spontaneous
  Country: US (occurrence: US)
  Receive Date: 20241120
  Receipt Date: 20241120
  Transmission Date: 20250115
  Serious: Yes (Life-Threatening)
  Sender: HETERO
  Company Number: US-AMAROX PHARMA-HET2024US04232

PATIENT
  Age: 7 Decade
  Sex: Female

DRUGS (1)
  1. APIXABAN [Suspect]
     Active Substance: APIXABAN
     Indication: Atrial fibrillation
     Dosage: UNK
     Route: 065

REACTIONS (2)
  - Basilar artery thrombosis [Recovered/Resolved]
  - Treatment failure [Unknown]
